FAERS Safety Report 9932214 (Version 1)
Quarter: 2014Q1

REPORT INFORMATION
  Report Type: Report from Study
  Country: US (occurrence: US)
  Receive Date: 20140228
  Receipt Date: 20140228
  Transmission Date: 20141002
  Serious: No
  Sender: FDA-Public Use
  Company Number: US-ABBVIE-13P-163-1150472-00

PATIENT
  Age: 52 Year
  Sex: Male
  Weight: 108.96 kg

DRUGS (2)
  1. ANDROGEL [Suspect]
     Indication: BLOOD TESTOSTERONE DECREASED
     Route: 062
     Dates: start: 201308
  2. EXFORGE [Concomitant]
     Indication: HYPERTENSION

REACTIONS (2)
  - Muscle disorder [Not Recovered/Not Resolved]
  - Genital paraesthesia [Not Recovered/Not Resolved]
